FAERS Safety Report 8057359-6 (Version None)
Quarter: 2012Q1

REPORT INFORMATION
  Report Type: 
  Country: None (occurrence: None)
  Receive Date: 20120119
  Receipt Date: 20120113
  Transmission Date: 20120608
  Serious: Yes (Other)
  Sender: FDA-Public Use
  Company Number: US-ASTRAZENECA-2012SE02784

PATIENT
  Sex: Female

DRUGS (2)
  1. SYMBICORT [Suspect]
     Indication: ASTHMA
     Dosage: 2 PUFFS, TWO TIMES A DAY
     Route: 055
  2. SYMBICORT [Suspect]
     Indication: WHEEZING
     Dosage: 2 PUFFS, TWO TIMES A DAY
     Route: 055

REACTIONS (3)
  - HAEMOPTYSIS [None]
  - DRY MOUTH [None]
  - OFF LABEL USE [None]
